FAERS Safety Report 15496786 (Version 3)
Quarter: 2023Q4

REPORT INFORMATION
  Report Type: Spontaneous
  Country: US (occurrence: US)
  Receive Date: 20181014
  Receipt Date: 20231004
  Transmission Date: 20240110
  Serious: Yes (Other)
  Sender: FDA-Public Use
  Company Number: US-JNJFOC-20181005682

PATIENT
  Age: 14 Year
  Sex: Male

DRUGS (5)
  1. RISPERDAL [Suspect]
     Active Substance: RISPERIDONE
     Indication: Aggression
     Dosage: VARYING DOSES OF 0.5 MG AND 1 MG WITH VARYING FREQUENCIES OF ONE OR TWICE DAILY
     Route: 048
     Dates: start: 20110921, end: 20140527
  2. RISPERDAL [Suspect]
     Active Substance: RISPERIDONE
     Indication: Affective disorder
     Dosage: 1 MG HALF TABLET (0.5 MG) IN MORNING AND 1 AT BEDTIME
     Route: 048
     Dates: start: 20140528
  3. RISPERDAL [Suspect]
     Active Substance: RISPERIDONE
     Indication: Agitation
  4. RISPERDAL [Suspect]
     Active Substance: RISPERIDONE
     Indication: Irritability
  5. RISPERIDONE [Suspect]
     Active Substance: RISPERIDONE
     Indication: Product used for unknown indication
     Route: 048
     Dates: start: 20110921, end: 20140528

REACTIONS (6)
  - Obesity [Recovering/Resolving]
  - Emotional disorder [Unknown]
  - Gynaecomastia [Unknown]
  - Sedation [Recovering/Resolving]
  - Drug ineffective [Unknown]
  - Treatment noncompliance [Unknown]

NARRATIVE: CASE EVENT DATE: 20130901
